FAERS Safety Report 15596897 (Version 5)
Quarter: 2018Q4

REPORT INFORMATION
  Report Type: Report from Study
  Country: None (occurrence: GB)
  Receive Date: 20181108
  Receipt Date: 20181229
  Transmission Date: 20190205
  Serious: Yes (Hospitalization)
  Sender: FDA-Public Use
  Company Number: GB-ABBVIE-18S-167-2544736-00

PATIENT
  Age: 51 Year
  Sex: Female

DRUGS (1)
  1. DUODOPA [Suspect]
     Active Substance: CARBIDOPA\LEVODOPA
     Indication: PARKINSON^S DISEASE
     Dosage: 100ML CASSETTES, DAILY. 5MG/1ML 20MG/1ML
     Route: 050

REACTIONS (8)
  - Suicide attempt [Unknown]
  - Psychotic disorder [Unknown]
  - Disorientation [Unknown]
  - Intentional device misuse [Unknown]
  - Hospitalisation [Unknown]
  - Agitation [Unknown]
  - Mental impairment [Unknown]
  - Confusional state [Unknown]

NARRATIVE: CASE EVENT DATE: 2018
